FAERS Safety Report 6287875-9 (Version None)
Quarter: 2009Q3

REPORT INFORMATION
  Report Type: 
  Country: None (occurrence: None)
  Receive Date: 20090729
  Receipt Date: 20090722
  Transmission Date: 20100115
  Serious: Yes (Hospitalization, Other)
  Sender: FDA-Public Use
  Company Number: US-ELI_LILLY_AND_COMPANY-US200907004825

PATIENT
  Sex: Female

DRUGS (9)
  1. HUMALOG MIX 75/25 [Suspect]
  2. ATENOLOL [Concomitant]
  3. LOTREL [Concomitant]
  4. ACTOS [Concomitant]
  5. METFORMIN [Concomitant]
  6. LEVOTHYROXINE SODIUM [Concomitant]
  7. LASIX [Concomitant]
     Indication: OEDEMA PERIPHERAL
  8. TYLENOL (CAPLET) [Concomitant]
     Indication: PAIN
  9. ASPIRIN [Concomitant]

REACTIONS (9)
  - ARTHRALGIA [None]
  - CARDIAC MURMUR [None]
  - DENTAL CARIES [None]
  - INTERVERTEBRAL DISC DEGENERATION [None]
  - JOINT SWELLING [None]
  - OEDEMA PERIPHERAL [None]
  - PAIN [None]
  - TOOTH INFECTION [None]
  - WRONG TECHNIQUE IN DRUG USAGE PROCESS [None]
